FAERS Safety Report 10033968 (Version 3)
Quarter: 2017Q2

REPORT INFORMATION
  Report Type: Spontaneous
  Country: NO (occurrence: NO)
  Receive Date: 20140320
  Receipt Date: 20170601
  Transmission Date: 20170829
  Serious: Yes (Life-Threatening)
  Sender: FDA-Public Use
  Company Number: NO-SEPTODONT-201401795

PATIENT
  Age: 67 Year
  Sex: Female

DRUGS (3)
  1. SEPTOCAINE [Suspect]
     Active Substance: ARTICAINE HYDROCHLORIDE\EPINEPHRINE BITARTRATE
     Indication: LOCAL ANAESTHESIA
     Route: 004
     Dates: start: 20140220, end: 20140220
  2. BETMIGA [Concomitant]
     Active Substance: MIRABEGRON
     Route: 048
  3. CANDESARTAN. [Concomitant]
     Active Substance: CANDESARTAN
     Route: 048

REACTIONS (5)
  - Hypopnoea [Recovered/Resolved]
  - Hyperhidrosis [Recovered/Resolved]
  - Cyanosis [Recovered/Resolved]
  - Hypotension [Recovered/Resolved]
  - Pulse abnormal [Recovered/Resolved]

NARRATIVE: CASE EVENT DATE: 20140220
